FAERS Safety Report 7406648-4 (Version None)
Quarter: 2011Q2

REPORT INFORMATION
  Report Type: 
  Country: None (occurrence: None)
  Receive Date: 20110411
  Receipt Date: 20110401
  Transmission Date: 20111010
  Serious: Yes (Hospitalization, Other)
  Sender: FDA-Public Use
  Company Number: FR-BRISTOL-MYERS SQUIBB COMPANY-15650948

PATIENT
  Age: 85 Year
  Sex: Female

DRUGS (11)
  1. CETORNAN [Concomitant]
  2. TEMESTA [Concomitant]
  3. DIFFU-K [Concomitant]
     Dosage: 1 DF = 2 CAPS
  4. COVERSYL [Concomitant]
  5. SPECIAFOLDINE [Concomitant]
  6. COUMADIN [Suspect]
     Route: 048
     Dates: end: 20101102
  7. ACETAMINOPHEN [Interacting]
     Dosage: 1 DF = 1 TO 3 G
     Dates: end: 20101103
  8. INIPOMP [Interacting]
  9. MONOZECLAR [Interacting]
     Indication: BRONCHITIS
  10. FLECAINE [Concomitant]
     Dosage: FLECAINE LP
  11. LEVOTHYROX [Concomitant]

REACTIONS (6)
  - INTERNATIONAL NORMALISED RATIO INCREASED [None]
  - DRUG INTERACTION [None]
  - ACCIDENTAL OVERDOSE [None]
  - BRONCHITIS [None]
  - HAEMOPTYSIS [None]
  - HAEMATURIA [None]
